FAERS Safety Report 25869230 (Version 1)
Quarter: 2025Q4

REPORT INFORMATION
  Report Type: Other
  Country: CN (occurrence: CN)
  Receive Date: 20251001
  Receipt Date: 20251001
  Transmission Date: 20260118
  Serious: Yes (Life-Threatening)
  Sender: KARYOPHARM THERAPEUTICS
  Company Number: CN-ANTENGENE-20250903368

PATIENT

DRUGS (5)
  1. SELINEXOR [Suspect]
     Active Substance: SELINEXOR
     Indication: Plasma cell myeloma
     Dosage: 40 MG BIW
     Route: 048
     Dates: start: 20250716
  2. SELINEXOR [Suspect]
     Active Substance: SELINEXOR
     Dosage: 60 MG QW
     Route: 048
     Dates: start: 202509
  3. CARFILZOMIB [Suspect]
     Active Substance: CARFILZOMIB
     Indication: Plasma cell myeloma
     Dosage: 44 MG CYCLIC
     Route: 040
     Dates: start: 20250716
  4. CYCLOPHOSPHAMIDE [Suspect]
     Active Substance: CYCLOPHOSPHAMIDE
     Indication: Plasma cell myeloma
     Dosage: 0.4 G CYCLIC
     Dates: start: 20250716
  5. DEXAMETHASONE SODIUM PHOSPHATE [Concomitant]
     Active Substance: DEXAMETHASONE SODIUM PHOSPHATE
     Indication: Plasma cell myeloma
     Dosage: 20 MG CYCLIC
     Route: 040
     Dates: start: 20250716

REACTIONS (2)
  - White blood cell count decreased [Recovering/Resolving]
  - Neutrophil count decreased [Recovering/Resolving]

NARRATIVE: CASE EVENT DATE: 20250901
